FAERS Safety Report 24697226 (Version 1)
Quarter: 2024Q4

REPORT INFORMATION
  Report Type: Spontaneous
  Country: AU (occurrence: AU)
  Receive Date: 20241204
  Receipt Date: 20241204
  Transmission Date: 20250115
  Serious: Yes (Life-Threatening, Other)
  Sender: BAXTER
  Company Number: AU-BAXTER-2024BAX028890

PATIENT
  Age: 26 Year
  Sex: Female

DRUGS (12)
  1. PROPOFOL [Suspect]
     Active Substance: PROPOFOL
     Indication: Induction of anaesthesia
     Dosage: INITIATED WITH 200 MG
     Route: 065
  2. PROPOFOL [Suspect]
     Active Substance: PROPOFOL
     Indication: Maintenance of anaesthesia
     Dosage: ACHIEVED WITH COMBINED PROPOFOL TARGET-CONTROLLED INFUSION (MARSH MODEL) AT 1.5-2 ?G/ML
     Route: 065
  3. PROPOFOL [Suspect]
     Active Substance: PROPOFOL
     Dosage: INFUSION WAS INCREASED TO A PLASMA TARGET OF 4 ?G/ML, THREE AND A HALF HOURS AFTER INDUCTION (DURING
     Route: 065
  4. REMIFENTANIL [Concomitant]
     Active Substance: REMIFENTANIL
     Indication: Induction of anaesthesia
     Dosage: INITIATED WITH 0.2 ?G/KG/MIN
     Route: 065
  5. ROCURONIUM [Concomitant]
     Active Substance: ROCURONIUM BROMIDE
     Indication: Induction of anaesthesia
     Dosage: INITIATED WITH 50 MG
     Route: 065
  6. DEXAMETHASONE [Concomitant]
     Active Substance: DEXAMETHASONE
     Dosage: RECEIVED 8 MG AT INDUCTION
     Route: 065
  7. COCAINE [Concomitant]
     Active Substance: COCAINE
     Dosage: NOSE WAS TOPICALISED WITH COCAINE (SOLUTION COMPRISING 2 ML 10% COCAINE) AFTER INTUBATION
     Route: 061
  8. EPINEPHRINE [Concomitant]
     Active Substance: EPINEPHRINE
     Dosage: NOSE WAS TOPICALISED WITH ADRENALINE (SOLUTION COMPRISING ADRENALINE 1 ML 1:1000 AND 8 ML SALINE) AF
     Route: 061
  9. SALINE [Concomitant]
     Active Substance: SODIUM CHLORIDE
     Indication: Medication dilution
     Dosage: NOSE WAS TOPICALISED WITH ADRENALINE 1:1000 AND 8 ML SALINE) AFTER INTUBATION
     Route: 061
  10. LIDOCAINE HYDROCHLORIDE [Concomitant]
     Active Substance: LIDOCAINE HYDROCHLORIDE
     Dosage: NOSE WAS TOPICALISED WITH 2.2 ML LIGNOSPAN SPECIAL AFTER INTUBATION
     Route: 061
  11. SEVOFLURANE [Concomitant]
     Active Substance: SEVOFLURANE
     Indication: Maintenance of anaesthesia
     Dosage: ACHIEVED AT AN EXPIRED VOLUME OF 0.7-1.4%
     Route: 065
  12. SEVOFLURANE [Concomitant]
     Active Substance: SEVOFLURANE
     Dosage: THREE AND A HALF HOURS AFTER INDUCTION (DURING THE  SURGERY), SEVOFLURANE ADMINISTRATION WAS TRANSIE
     Route: 065

REACTIONS (5)
  - Diabetes insipidus [Recovered/Resolved]
  - Urine output increased [Recovered/Resolved]
  - Blood sodium increased [Recovered/Resolved]
  - Blood osmolarity increased [Recovered/Resolved]
  - Blood lactic acid increased [Recovered/Resolved]
